FAERS Safety Report 7574118-9 (Version None)
Quarter: 2011Q2

REPORT INFORMATION
  Report Type: 
  Country: None (occurrence: None)
  Receive Date: 20110627
  Receipt Date: 20110606
  Transmission Date: 20111010
  Serious: Yes (Other)
  Sender: FDA-Public Use
  Company Number: US-BAYER-2011-049198

PATIENT
  Age: 58 Year
  Sex: Male

DRUGS (3)
  1. TARKA [Concomitant]
  2. ZOCOR [Concomitant]
  3. MAGNESIUM HYDROXIDE TAB [Suspect]
     Indication: CONSTIPATION
     Dosage: 2 DF, QD
     Route: 048

REACTIONS (2)
  - MUSCLE SPASMS [None]
  - PANCREATITIS [None]
